FAERS Safety Report 19039742 (Version 2)
Quarter: 2021Q2

REPORT INFORMATION
  Report Type: Spontaneous
  Country: US (occurrence: US)
  Receive Date: 20210322
  Receipt Date: 20210407
  Transmission Date: 20210717
  Serious: No
  Sender: FDA-Public Use
  Company Number: US-IPSEN BIOPHARMACEUTICALS, INC.-2021-07019

PATIENT
  Age: 51 Year
  Sex: Female

DRUGS (7)
  1. DYSPORT [Suspect]
     Active Substance: ABOBOTULINUMTOXINA
     Indication: SKIN COSMETIC PROCEDURE
     Dosage: 168 IU
     Route: 065
     Dates: start: 20210217, end: 20210217
  2. RESTYLANE LYFT [Suspect]
     Active Substance: HYALURONIC ACID
     Indication: SKIN WRINKLING
     Dosage: 2.5 CC (1 ML)
     Dates: start: 20210217, end: 20210217
  3. RADIESSE [Suspect]
     Active Substance: TRIBASIC CALCIUM PHOSPHATE
     Indication: SKIN WRINKLING
     Dates: start: 20210217, end: 20210217
  4. COVID VACCINE [Concomitant]
  5. LIDOCAINE WITH EPI [Suspect]
     Active Substance: EPINEPHRINE\LIDOCAINE
     Indication: PREMEDICATION
     Dates: start: 20210217
  6. MULTIVITAMIN [Concomitant]
     Active Substance: VITAMINS
     Dosage: DAILY
  7. COVID VACCINE [Concomitant]
     Dates: start: 202101

REACTIONS (3)
  - Vascular occlusion [Recovered/Resolved]
  - Prescribed overdose [Unknown]
  - Injection site bruising [Recovered/Resolved]

NARRATIVE: CASE EVENT DATE: 2021
